FAERS Safety Report 16242046 (Version 1)
Quarter: 2019Q2

REPORT INFORMATION
  Report Type: Spontaneous
  Country: US (occurrence: US)
  Receive Date: 20190426
  Receipt Date: 20190426
  Transmission Date: 20190711
  Serious: Yes (Hospitalization, Other)
  Sender: FDA-Public Use
  Company Number: US-ALKEM LABORATORIES LIMITED-US-ALKEM-2019-03676

PATIENT
  Age: 67 Year
  Sex: Female

DRUGS (3)
  1. CARBOPLATIN. [Concomitant]
     Active Substance: CARBOPLATIN
     Indication: ADJUVANT THERAPY
     Dosage: UNK
     Route: 065
  2. CAPECITABINE. [Suspect]
     Active Substance: CAPECITABINE
     Indication: ADJUVANT THERAPY
     Dosage: 1000 MILLIGRAM/SQ. METER, BID FOR 14 DAYS
     Route: 065
  3. CAPECITABINE. [Suspect]
     Active Substance: CAPECITABINE
     Dosage: 1000 MILLIGRAM/SQ. METER, BID DURING RADIATION
     Route: 065

REACTIONS (3)
  - Hepatic steatosis [Unknown]
  - Hyperammonaemia [Recovering/Resolving]
  - Delirium [Unknown]
